FAERS Safety Report 8180317-8 (Version None)
Quarter: 2012Q1

REPORT INFORMATION
  Report Type: 
  Country: None (occurrence: None)
  Receive Date: 20120302
  Receipt Date: 20120222
  Transmission Date: 20120608
  Serious: Yes (Hospitalization)
  Sender: FDA-Public Use
  Company Number: PHHY2012DE011663

PATIENT
  Sex: Female
  Weight: 63 kg

DRUGS (11)
  1. ILARIS [Suspect]
     Indication: CHRONIC INFANTILE NEUROLOGICAL CUTANEOUS AND ARTICULAR SYNDROME
     Dosage: 300 MG, FOR EVERY 8 WEEKS
     Route: 058
     Dates: start: 20100601
  2. LYRICA [Concomitant]
     Indication: PAIN
     Dosage: 25 MG, QD
     Route: 048
     Dates: start: 20100101
  3. DOMINAL [Concomitant]
     Indication: DEPRESSION
     Dosage: 40 MG, QD
     Route: 048
     Dates: start: 20110101
  4. PREDNISONE TAB [Concomitant]
     Indication: CHRONIC INFANTILE NEUROLOGICAL CUTANEOUS AND ARTICULAR SYNDROME
     Dosage: 2.5 MG, QD
     Route: 048
     Dates: start: 20110101
  5. VENLAFAXINE [Concomitant]
     Indication: DEPRESSION
     Dosage: 150 MG, QD
     Route: 048
     Dates: start: 20100101
  6. PREDNISONE TAB [Concomitant]
  7. PERILAX [Concomitant]
     Indication: DEPRESSION
     Dosage: 100 MG, QD
     Route: 048
     Dates: start: 20110101
  8. DIPIPERON [Concomitant]
     Indication: SLEEP DISORDER
     Dosage: 80 MG, QD
     Route: 048
     Dates: start: 20090101
  9. BECLOMETASONE DIPROPIONATE W/FORMOTEROL FUMARATE [Concomitant]
     Indication: RESPIRATORY DISORDER
     Dosage: 200 UG, QMO
     Route: 048
     Dates: start: 20110101
  10. KINERET [Concomitant]
     Indication: CHRONIC INFANTILE NEUROLOGICAL CUTANEOUS AND ARTICULAR SYNDROME
     Dosage: 100 MG, QD
     Route: 058
     Dates: start: 20120201
  11. TRENTAL [Concomitant]
     Indication: SUDDEN HEARING LOSS
     Dosage: 800 MG, QD
     Route: 048
     Dates: start: 20090101

REACTIONS (2)
  - INTRACRANIAL PRESSURE INCREASED [None]
  - MENINGITIS [None]
